FAERS Safety Report 21257352 (Version 3)
Quarter: 2023Q2

REPORT INFORMATION
  Report Type: Report from Study
  Country: NL (occurrence: NL)
  Receive Date: 20220826
  Receipt Date: 20230601
  Transmission Date: 20230722
  Serious: Yes (Death)
  Sender: FDA-Public Use
  Company Number: NL-JNJFOC-20220848135

PATIENT
  Age: 68 Year
  Sex: Male

DRUGS (6)
  1. STELARA [Suspect]
     Active Substance: USTEKINUMAB
     Indication: Psoriasis
     Route: 058
     Dates: start: 20191007
  2. LISINOPRIL [Concomitant]
     Active Substance: LISINOPRIL
     Route: 048
  3. FENOTEROL [Concomitant]
     Active Substance: FENOTEROL
     Dosage: 50/20UG/DO 200
  4. CLOPIDOGREL [Concomitant]
     Active Substance: CLOPIDOGREL BISULFATE
  5. SIMVASTATIN [Concomitant]
     Active Substance: SIMVASTATIN
  6. OLODATEROL\TIOTROPIUM [Concomitant]
     Active Substance: OLODATEROL\TIOTROPIUM
     Dosage: 2,5/2,SUG/DO

REACTIONS (1)
  - Diffuse large B-cell lymphoma [Fatal]

NARRATIVE: CASE EVENT DATE: 20220524
